FAERS Safety Report 14719195 (Version 3)
Quarter: 2018Q3

REPORT INFORMATION
  Report Type: Report from Study
  Country: CO (occurrence: CO)
  Receive Date: 20180405
  Receipt Date: 20180911
  Transmission Date: 20181010
  Serious: Yes (Other)
  Sender: FDA-Public Use
  Company Number: CO-INCYTE CORPORATION-2016IN008214

PATIENT

DRUGS (2)
  1. JAKAVI [Suspect]
     Active Substance: RUXOLITINIB
     Dosage: 30 MG, QD
     Route: 048
  2. JAKAVI [Suspect]
     Active Substance: RUXOLITINIB
     Indication: PRIMARY MYELOFIBROSIS
     Dosage: UNK UNK, BID
     Route: 048

REACTIONS (11)
  - Anaemia [Unknown]
  - Platelet count decreased [Unknown]
  - Skin disorder [Unknown]
  - Alopecia [Unknown]
  - Inappropriate schedule of drug administration [Unknown]
  - Onychoclasis [Unknown]
  - Varicose vein [Unknown]
  - Renal impairment [Unknown]
  - Rash [Unknown]
  - Thyroid disorder [Unknown]
  - Onychomadesis [Unknown]

NARRATIVE: CASE EVENT DATE: 20160703
